FAERS Safety Report 8470515-8 (Version None)
Quarter: 2012Q2

REPORT INFORMATION
  Report Type: 
  Country: None (occurrence: None)
  Receive Date: 20120627
  Receipt Date: 20111209
  Transmission Date: 20120825
  Serious: No
  Sender: FDA-Public Use
  Company Number: US-MYLANLABS-2011S1024167

PATIENT
  Age: 81 Year
  Sex: Female

DRUGS (22)
  1. PERFOROMIST [Suspect]
     Indication: OSTEOARTHRITIS
     Route: 055
     Dates: start: 20100101, end: 20110101
  2. PERFOROMIST [Suspect]
     Route: 055
     Dates: start: 20110101, end: 20111001
  3. COMBIVENT [Concomitant]
     Route: 055
  4. PERFOROMIST [Suspect]
     Indication: CHRONIC OBSTRUCTIVE PULMONARY DISEASE
     Route: 055
     Dates: start: 20100101, end: 20110101
  5. PERFOROMIST [Suspect]
     Route: 055
     Dates: start: 20110101, end: 20111001
  6. BENEFIBER /00677201/ [Concomitant]
  7. GABAPENTIN [Concomitant]
  8. XANAX [Concomitant]
  9. MULTI-VITAMINS [Concomitant]
  10. CALCIUM [Concomitant]
  11. PERFOROMIST [Suspect]
     Indication: OSTEOPOROSIS
     Route: 055
     Dates: start: 20100101, end: 20110101
  12. PERFOROMIST [Suspect]
     Route: 055
     Dates: start: 20110101, end: 20111001
  13. VITAMIN TAB [Concomitant]
  14. PERFOROMIST [Suspect]
     Indication: EMPHYSEMA
     Route: 055
     Dates: start: 20100101, end: 20110101
  15. PERFOROMIST [Suspect]
     Route: 055
     Dates: start: 20110101, end: 20111001
  16. CELEXA [Concomitant]
  17. BENADRYL [Concomitant]
  18. SIMVASTATIN [Concomitant]
  19. VITAMIN B-12 [Concomitant]
  20. PAPAYA ENZYME /00389401/ [Concomitant]
  21. MAGNESIUM OXIDE [Concomitant]
  22. IBUPROFEN [Concomitant]
     Indication: PAIN

REACTIONS (2)
  - BLOOD GLUCOSE INCREASED [None]
  - DIZZINESS [None]
